FAERS Safety Report 6261646-1 (Version None)
Quarter: 2009Q3

REPORT INFORMATION
  Report Type: 
  Country: None (occurrence: None)
  Receive Date: 20090707
  Receipt Date: 20090707
  Transmission Date: 20100115
  Serious: No
  Sender: FDA-Public Use
  Company Number: None

PATIENT
  Age: 29 Year
  Sex: Female
  Weight: 81.6475 kg

DRUGS (1)
  1. MIRENA [Suspect]
     Indication: CONTRACEPTION
     Dates: start: 20090330, end: 20090630

REACTIONS (9)
  - ANGER [None]
  - DEPRESSED MOOD [None]
  - EMOTIONAL DISORDER [None]
  - HOT FLUSH [None]
  - HUNGER [None]
  - LOSS OF LIBIDO [None]
  - MOOD ALTERED [None]
  - SKIN ODOUR ABNORMAL [None]
  - WEIGHT INCREASED [None]
